FAERS Safety Report 9375955 (Version 1)
Quarter: 2013Q2

REPORT INFORMATION
  Report Type: Spontaneous
  Country: FR (occurrence: FR)
  Receive Date: 20130628
  Receipt Date: 20130628
  Transmission Date: 20140414
  Serious: Yes (Other)
  Sender: FDA-Public Use
  Company Number: FR-PR/991117/137

PATIENT
  Age: 24 Hour
  Sex: 0

DRUGS (2)
  1. SUBUTEX [Suspect]
     Indication: DRUG DEPENDENCE
     Dosage: MOTHER TOOK 0.8MG DAILY
     Route: 064
     Dates: end: 199906
  2. SOLUPRED (PREDNISOLONE) [Suspect]
     Indication: HEPATITIS C
     Dosage: UNKNOWN DOSING DETAILS FOR MOTHER
     Route: 064

REACTIONS (2)
  - Foetal exposure during pregnancy [Recovered/Resolved]
  - Adrenal insufficiency neonatal [Recovered/Resolved]
